FAERS Safety Report 9625113 (Version 2)
Quarter: 2014Q1

REPORT INFORMATION
  Report Type: Spontaneous
  Country: US (occurrence: US)
  Receive Date: 20131016
  Receipt Date: 20140117
  Transmission Date: 20141002
  Serious: No
  Sender: FDA-Public Use
  Company Number: US-009507513-1310USA005449

PATIENT
  Sex: Female
  Weight: 68.27 kg

DRUGS (1)
  1. MIRALAX [Suspect]
     Indication: FAECES HARD
     Dosage: 17 G, QD
     Route: 048
     Dates: start: 201301

REACTIONS (3)
  - Hepatic enzyme increased [Unknown]
  - Incorrect drug administration duration [Unknown]
  - Off label use [Unknown]
